FAERS Safety Report 6304683-0 (Version None)
Quarter: 2009Q3

REPORT INFORMATION
  Report Type: 
  Country: None (occurrence: None)
  Receive Date: 20090806
  Receipt Date: 20090724
  Transmission Date: 20100115
  Serious: Yes (Other)
  Sender: FDA-Public Use
  Company Number: ACO_00542_2009

PATIENT
  Age: 45 Year
  Sex: Male

DRUGS (3)
  1. TIZANIDINE HYDROCHLORIDE [Suspect]
     Indication: MUSCLE SPASMS
     Dosage: 4 MG QD, AT BEDTIME, ORAL
     Route: 048
  2. METHADONE [Suspect]
     Indication: DRUG USE FOR UNKNOWN INDICATION
     Dosage: 2.5 MG BID ORAL
     Route: 048
  3. HYDROCODONE [Concomitant]

REACTIONS (3)
  - DRUG INTERACTION [None]
  - ROAD TRAFFIC ACCIDENT [None]
  - SEDATION [None]
